FAERS Safety Report 20511005 (Version 1)
Quarter: 2022Q1

REPORT INFORMATION
  Report Type: Spontaneous
  Country: US (occurrence: None)
  Receive Date: 20220223
  Receipt Date: 20220223
  Transmission Date: 20220423
  Serious: No
  Sender: FDA-Public Use
  Company Number: None

PATIENT
  Age: 5 Year
  Sex: Female

DRUGS (1)
  1. H.P. ACTHAR [Suspect]
     Active Substance: CORTICOTROPIN
     Dosage: 61 UNITS OTHER INTRAMUSCULAR?
     Route: 030
     Dates: start: 202202

REACTIONS (1)
  - Off label use [None]

NARRATIVE: CASE EVENT DATE: 20220223
